FAERS Safety Report 19905639 (Version 2)
Quarter: 2021Q4

REPORT INFORMATION
  Report Type: Spontaneous
  Country: CA (occurrence: CA)
  Receive Date: 20210930
  Receipt Date: 20211103
  Transmission Date: 20220303
  Serious: Yes (Death)
  Sender: FDA-Public Use
  Company Number: CA-PFIZER INC-202101287010

PATIENT
  Age: 64 Year
  Sex: Female

DRUGS (3)
  1. IBRANCE [Suspect]
     Active Substance: PALBOCICLIB
     Dosage: 125 MG, CYCLIC (FOR 21 DAYS THEN STOP FOR 7 DAYS) THEN REPEAT CYCLE
     Dates: start: 20191030
  2. IBRANCE [Suspect]
     Active Substance: PALBOCICLIB
     Dosage: 125 MG, CYCLIC (FOR 21 DAYS THEN STOP FOR 7 DAYS) THEN REPEAT CYCLE
     Dates: start: 20191108
  3. IBRANCE [Suspect]
     Active Substance: PALBOCICLIB
     Dosage: 125 MG, CYCLIC (FOR 21 DAYS THEN STOP FOR 7 DAYS) THEN REPEAT CYCLE
     Dates: start: 20210111, end: 202101

REACTIONS (1)
  - Neoplasm progression [Fatal]
